FAERS Safety Report 5911809-7 (Version None)
Quarter: 2008Q4

REPORT INFORMATION
  Report Type: 
  Country: None (occurrence: None)
  Receive Date: 20081008
  Receipt Date: 20081001
  Transmission Date: 20090506
  Serious: Yes (Hospitalization, Other)
  Sender: FDA-Public Use
  Company Number: BR-BAYER-BR-2006-006987

PATIENT
  Age: 46 Year
  Sex: Male

DRUGS (2)
  1. BETAFERON [Suspect]
     Indication: MULTIPLE SCLEROSIS
     Route: 058
     Dates: start: 20060214, end: 20060701
  2. IMURAN [Concomitant]
     Indication: MULTIPLE SCLEROSIS
     Route: 048
     Dates: start: 20060901

REACTIONS (4)
  - CARDIAC VALVE DISEASE [None]
  - ENDOCARDITIS [None]
  - POLLAKIURIA [None]
  - PYREXIA [None]
